FAERS Safety Report 6835384-8 (Version None)
Quarter: 2010Q3

REPORT INFORMATION
  Report Type: 
  Country: None (occurrence: None)
  Receive Date: 20100713
  Receipt Date: 20100705
  Transmission Date: 20110219
  Serious: Yes (Other)
  Sender: FDA-Public Use
  Company Number: US-SANOFI-AVENTIS-2010SA039131

PATIENT
  Age: 55 Year
  Sex: Male
  Weight: 115.91 kg

DRUGS (10)
  1. AMBIEN [Suspect]
     Route: 048
     Dates: start: 20080101, end: 20090901
  2. VALPROIC ACID [Concomitant]
     Indication: DEPRESSION
  3. SERTRALINE HCL [Concomitant]
  4. BUPROPION [Concomitant]
  5. MORPHINE SULFATE [Concomitant]
  6. LISINOPRIL [Concomitant]
  7. ALLOPURINOL [Concomitant]
  8. OXYCODONE HCL [Concomitant]
  9. METHYLPHENIDATE [Concomitant]
  10. SUMATRIPTAN SUCCINATE [Concomitant]

REACTIONS (5)
  - COMPRESSION FRACTURE [None]
  - FALL [None]
  - NECK PAIN [None]
  - ROTATOR CUFF SYNDROME [None]
  - SOMNAMBULISM [None]
